FAERS Safety Report 6053003-8 (Version None)
Quarter: 2009Q1

REPORT INFORMATION
  Report Type: 
  Country: None (occurrence: None)
  Receive Date: 20090127
  Receipt Date: 20090115
  Transmission Date: 20090719
  Serious: Yes (Other)
  Sender: FDA-Public Use
  Company Number: DE-BAYER-200832556GPV

PATIENT
  Age: 16 Year
  Sex: Female
  Weight: 57 kg

DRUGS (1)
  1. MINISISTON 20 FEM [Suspect]
     Indication: ORAL CONTRACEPTION
     Route: 048
     Dates: start: 20081125, end: 20081204

REACTIONS (2)
  - ALTERED STATE OF CONSCIOUSNESS [None]
  - SYNCOPE [None]
